FAERS Safety Report 6987209-8 (Version None)
Quarter: 2010Q3

REPORT INFORMATION
  Report Type: 
  Country: None (occurrence: None)
  Receive Date: 20100916
  Receipt Date: 20100813
  Transmission Date: 20110219
  Serious: No
  Sender: FDA-Public Use
  Company Number: CA-PFIZER INC-2010097225

PATIENT
  Age: 44 Year
  Sex: Male

DRUGS (3)
  1. CHAMPIX [Suspect]
     Indication: SMOKING CESSATION THERAPY
     Dosage: 0.5 MG, 1X/DAY
     Dates: start: 20100802, end: 20100804
  2. CHAMPIX [Suspect]
     Dosage: 0.5 MG, 2X/DAY
     Dates: start: 20100805, end: 20100808
  3. CHAMPIX [Suspect]
     Dosage: 1.0 MG, 2X/DAY
     Dates: start: 20100809

REACTIONS (3)
  - DYSGEUSIA [None]
  - NAUSEA [None]
  - RESTLESSNESS [None]
